FAERS Safety Report 10079793 (Version 3)
Quarter: 2014Q2

REPORT INFORMATION
  Report Type: Spontaneous
  Country: JP (occurrence: JP)
  Receive Date: 20140415
  Receipt Date: 20140609
  Transmission Date: 20141212
  Serious: Yes (Hospitalization)
  Sender: FDA-Public Use
  Company Number: JP-GLAXOSMITHKLINE-B0985556A

PATIENT
  Age: 71 Year
  Sex: Male

DRUGS (3)
  1. VOTRIENT 200MG [Suspect]
     Indication: ANGIOSARCOMA
     Dosage: 600MG PER DAY
     Route: 048
     Dates: start: 20140107, end: 20140409
  2. VOTRIENT 200MG [Suspect]
     Indication: ANGIOSARCOMA
     Dosage: 200MG PER DAY
     Route: 048
     Dates: start: 201405
  3. AVAPRO [Concomitant]
     Indication: HYPERTENSION
     Route: 048
     Dates: end: 201405

REACTIONS (4)
  - Venous thrombosis limb [Not Recovered/Not Resolved]
  - Pyrexia [Recovering/Resolving]
  - C-reactive protein increased [Recovering/Resolving]
  - Haemothorax [Unknown]
